FAERS Safety Report 21104819 (Version 2)
Quarter: 2022Q3

REPORT INFORMATION
  Report Type: Spontaneous
  Country: US (occurrence: US)
  Receive Date: 20220720
  Receipt Date: 20220909
  Transmission Date: 20221026
  Serious: No
  Sender: FDA-Public Use
  Company Number: US-PFIZER INC-202200935859

PATIENT
  Age: 15 Year
  Sex: Male
  Weight: 48.08 kg

DRUGS (1)
  1. GENOTROPIN [Suspect]
     Active Substance: SOMATROPIN
     Indication: Growth hormone deficiency
     Dosage: 1.4 MG, ONCE DAILY (NIGHTLY)

REACTIONS (2)
  - Wrong technique in device usage process [Unknown]
  - Device issue [Unknown]

NARRATIVE: CASE EVENT DATE: 20220705
